FAERS Safety Report 23618803 (Version 1)
Quarter: 2024Q1

REPORT INFORMATION
  Report Type: Spontaneous
  Country: US (occurrence: US)
  Receive Date: 20240311
  Receipt Date: 20240311
  Transmission Date: 20240409
  Serious: Yes (Other)
  Sender: FDA-Public Use
  Company Number: US-ANIPHARMA-2024-US-013259

PATIENT
  Sex: Female

DRUGS (15)
  1. ANASTROZOLE [Suspect]
     Active Substance: ANASTROZOLE
     Indication: Product used for unknown indication
     Route: 065
     Dates: end: 2024
  2. MAGNESIUM [Concomitant]
     Active Substance: MAGNESIUM
     Dosage: 500 MG TWICE DAILY
  3. ZITHROMAX [Concomitant]
     Active Substance: AZITHROMYCIN DIHYDRATE
  4. MUCINEX [Concomitant]
     Active Substance: GUAIFENESIN
  5. LOPERAMIDE [Concomitant]
     Active Substance: LOPERAMIDE
  6. IBRANCE [Suspect]
     Active Substance: PALBOCICLIB
     Dosage: 125 MG, THEN 75 MG
  7. PROBIOTICS NOS [Concomitant]
     Active Substance: PROBIOTICS NOS
  8. LOSARTAN [Concomitant]
     Active Substance: LOSARTAN
     Dosage: 50 MG DAILY
  9. CARVEDILOL [Concomitant]
     Active Substance: CARVEDILOL
     Dosage: 12.5 MG, 1.5 TABLET TWO TIMES DAILY
  10. TORSEMIDE [Concomitant]
     Active Substance: TORSEMIDE
     Dosage: 40 MG IN THE MORNING AND 30 MG IN THE AFTERNOON
  11. KLOR-CON [Concomitant]
     Active Substance: POTASSIUM CHLORIDE
     Dosage: 10 MEQ, 2 IN THE MORNING AND 1 IN THE AFTERNOON
  12. WARFARIN [Concomitant]
     Active Substance: WARFARIN
     Dosage: 7.5 MG 6 DAYS WEEKLY, AND 10 MG ON FRIDAYS
  13. SPIRONOLACTONE [Concomitant]
     Active Substance: SPIRONOLACTONE
     Dosage: 25 MG DAILY
  14. CALCIUM [Concomitant]
     Active Substance: CALCIUM
     Dosage: 600 MG TWICE DAILY
  15. VITAMIN D [Concomitant]
     Active Substance: VITAMIN D NOS
     Dosage: DAILY

REACTIONS (7)
  - Diarrhoea [Unknown]
  - Renal impairment [Unknown]
  - Metastases to bone [Unknown]
  - Drug ineffective [Unknown]
  - White blood cell count decreased [Unknown]
  - Platelet count decreased [Unknown]
  - Hip fracture [Unknown]
